FAERS Safety Report 25376785 (Version 1)
Quarter: 2025Q2

REPORT INFORMATION
  Report Type: Spontaneous
  Country: FR (occurrence: FR)
  Receive Date: 20250530
  Receipt Date: 20250530
  Transmission Date: 20250716
  Serious: Yes (Other)
  Sender: CHEPLAPHARM
  Company Number: None

PATIENT
  Age: 44 Year
  Sex: Male

DRUGS (12)
  1. CLONAZEPAM [Suspect]
     Active Substance: CLONAZEPAM
     Indication: Psychotic disorder
     Dosage: DAILY DOSE: 0.5 MILLIGRAM
     Route: 048
     Dates: start: 20240531, end: 20250131
  2. CLONAZEPAM [Suspect]
     Active Substance: CLONAZEPAM
     Indication: Psychotic disorder
     Dosage: DAILY DOSE: 1.5 MILLIGRAM
     Route: 048
     Dates: start: 20240722
  3. CLONAZEPAM [Suspect]
     Active Substance: CLONAZEPAM
     Indication: Psychotic disorder
     Dosage: DAILY DOSE: 1 MILLIGRAM
     Route: 048
     Dates: start: 20241021
  4. CLONAZEPAM [Suspect]
     Active Substance: CLONAZEPAM
     Indication: Psychotic disorder
     Dosage: DAILY DOSE: 0.5 MILLIGRAM
     Route: 048
     Dates: start: 20250120, end: 20250131
  5. CLONAZEPAM [Suspect]
     Active Substance: CLONAZEPAM
     Indication: Psychotic disorder
     Route: 048
     Dates: start: 20250207
  6. CLONAZEPAM [Suspect]
     Active Substance: CLONAZEPAM
     Indication: Psychotic disorder
     Dosage: DAILY DOSE: 2 MILLIGRAM
     Route: 048
     Dates: start: 20250424
  7. AMISULPRIDE [Concomitant]
     Active Substance: AMISULPRIDE
     Indication: Psychotic disorder
  8. CLOZAPINE [Concomitant]
     Active Substance: CLOZAPINE
     Indication: Psychotic disorder
  9. DUPHALAC [Concomitant]
     Active Substance: LACTULOSE
  10. LAMOTRIGINE [Concomitant]
     Active Substance: LAMOTRIGINE
     Indication: Epilepsy
     Dates: start: 20240720
  11. NICORETTE [Concomitant]
     Active Substance: NICOTINE
  12. NORMACOL [Concomitant]
     Active Substance: HERBALS\KARAYA GUM

REACTIONS (6)
  - Epilepsy [Recovered/Resolved]
  - Hallucination [Unknown]
  - Myoclonus [Unknown]
  - Confusional state [Unknown]
  - Tachyphrenia [Unknown]
  - Off label use [Recovered/Resolved]

NARRATIVE: CASE EVENT DATE: 20240531
